FAERS Safety Report 5897317-0 (Version None)
Quarter: 2008Q3

REPORT INFORMATION
  Report Type: 
  Country: None (occurrence: None)
  Receive Date: 20080908
  Receipt Date: 20080819
  Transmission Date: 20090109
  Serious: Yes (Hospitalization)
  Sender: FDA-Public Use
  Company Number: 08C403

PATIENT
  Sex: Male
  Weight: 90.7194 kg

DRUGS (1)
  1. SWIM EAR [Suspect]
     Dosage: 1 DROP IN EAR 1X
     Dates: start: 20080817

REACTIONS (1)
  - BURNING SENSATION [None]
